FAERS Safety Report 25496503 (Version 2)
Quarter: 2025Q4

REPORT INFORMATION
  Report Type: Report from Study
  Country: EU (occurrence: EU)
  Receive Date: 20250630
  Receipt Date: 20251027
  Transmission Date: 20260117
  Serious: Yes (Other)
  Sender: ABBVIE
  Company Number: EU-ABBVIE-6344119

PATIENT
  Age: 71 Year
  Sex: Male

DRUGS (7)
  1. FOSCARBIDOPA\FOSLEVODOPA [Suspect]
     Active Substance: FOSCARBIDOPA\FOSLEVODOPA
     Indication: Parkinson^s disease
     Dosage: 240 MG + 12 MG
     Route: 058
     Dates: start: 2025, end: 2025
  2. FOSCARBIDOPA\FOSLEVODOPA [Suspect]
     Active Substance: FOSCARBIDOPA\FOSLEVODOPA
     Dosage: 240 MG + 12 MG, FREQUENCY TEXT: LO:1;HI:0.64;BA:0.42(CON);LO:0.38;EX:0.3
     Route: 058
     Dates: start: 2025, end: 2025
  3. FOSCARBIDOPA\FOSLEVODOPA [Suspect]
     Active Substance: FOSCARBIDOPA\FOSLEVODOPA
     Dosage: 240 MG + 12 MG, FREQUENCY TEXT: LOAD:1;BASE:0.27;EXTR:0.15
     Route: 058
     Dates: start: 20240522, end: 20241014
  4. FOSCARBIDOPA\FOSLEVODOPA [Suspect]
     Active Substance: FOSCARBIDOPA\FOSLEVODOPA
     Dosage: 240 MG + 12 MG, FREQUENCY TEXT: CONTINUOUS:0.42
     Route: 058
     Dates: start: 20241014, end: 2025
  5. FOSCARBIDOPA\FOSLEVODOPA [Suspect]
     Active Substance: FOSCARBIDOPA\FOSLEVODOPA
     Dosage: DOSES: HIGH 0.42, BASE 0.40 AND  LOW 0.38 ML/H - CONTINUOUS INFUSION OF 0.38 ML/H.
     Route: 058
     Dates: start: 2025
  6. LOSARTAN [Concomitant]
     Active Substance: LOSARTAN
     Indication: Supine hypertension
     Dosage: 1 TABLET, FORM STRENGTH: 50 MILLIGRAM, FREQUENCY TEXT: AT BEDTIME, START DATE TEXT: BEFORE DUODOP...
     Route: 048
  7. MIDODRINE HYDROCHLORIDE [Concomitant]
     Active Substance: MIDODRINE HYDROCHLORIDE
     Indication: Product used for unknown indication
     Dosage: 1 TABLET, START DATE TEXT: BEFORE DUODOPA SUBCUTANEOUS
     Route: 048

REACTIONS (2)
  - Humerus fracture [Recovered/Resolved]
  - Fall [Recovered/Resolved]

NARRATIVE: CASE EVENT DATE: 20250621
